FAERS Safety Report 7737076-X (Version None)
Quarter: 2011Q3

REPORT INFORMATION
  Report Type: 
  Country: None (occurrence: None)
  Receive Date: 20110908
  Receipt Date: 20110901
  Transmission Date: 20111222
  Serious: Yes (Death, Hospitalization, Other)
  Sender: FDA-Public Use
  Company Number: US-ROCHE-791480

PATIENT
  Sex: Female
  Weight: 78.5 kg

DRUGS (4)
  1. AMITRIPTYLINE HCL [Concomitant]
  2. TRAMADOL HYDROCHLORIDE [Concomitant]
     Indication: PAIN
  3. NOROXIN [Concomitant]
  4. ACTEMRA [Suspect]
     Indication: RHEUMATOID ARTHRITIS
     Dosage: FORM: INFUSION
     Route: 042
     Dates: start: 20100427, end: 20110615

REACTIONS (4)
  - DEATH [None]
  - CENTRAL NERVOUS SYSTEM ABSCESS [None]
  - BONE MARROW DISORDER [None]
  - RENAL FAILURE [None]
